FAERS Safety Report 22242937 (Version 1)
Quarter: 2023Q2

REPORT INFORMATION
  Report Type: Other
  Country: None (occurrence: CN)
  Receive Date: 20230424
  Receipt Date: 20230424
  Transmission Date: 20230722
  Serious: Yes (Death)
  Sender: FDA-Public Use
  Company Number: CN-B.Braun Medical Inc.-2140711

PATIENT
  Age: 53 Year
  Sex: Male

DRUGS (2)
  1. LIDOCAINE HYDROCHLORIDE [Suspect]
     Active Substance: LIDOCAINE HYDROCHLORIDE
     Indication: Abdominal pain
     Route: 030
  2. DICLOFENAC SODIUM [Suspect]
     Active Substance: DICLOFENAC SODIUM

REACTIONS (3)
  - Hypoglycaemia [Fatal]
  - Respiratory arrest [Fatal]
  - Cardiac arrest [Fatal]
